FAERS Safety Report 4443526-7 (Version None)
Quarter: 2004Q3

REPORT INFORMATION
  Report Type: 
  Country: None (occurrence: None)
  Receive Date: 20040901
  Receipt Date: 20040820
  Transmission Date: 20050211
  Serious: Yes (Congenital Anomaly)
  Sender: FDA-Public Use
  Company Number: HQWYE480223AUG04

PATIENT
  Sex: 0

DRUGS (11)
  1. EFFEXOR XR [Suspect]
     Dosage: 450 MG 1X PER 1 DAY, TRANSPLACENTAL
     Route: 064
  2. ABILIFY [Suspect]
     Dosage: SEE IMAGE
     Route: 064
     Dates: end: 20031209
  3. ABILIFY [Suspect]
     Dosage: SEE IMAGE
     Route: 064
     Dates: start: 20031210, end: 20031229
  4. AMBIEN [Suspect]
     Dosage: 20 MG 1X PER 1 DAY, TRANSPLACENTAL
     Route: 062
  5. ATIVAN [Suspect]
     Dosage: 2 MG 1X PER 1 DAY, TRANSPLACENTAL
     Route: 062
     Dates: end: 20040101
  6. ATIVAN [Suspect]
     Dosage: 2 MG 1X PER 1 DAY, TRANSPLACENTAL
     Route: 064
     Dates: start: 20040101
  7. ATIVAN [Suspect]
     Dosage: TITRATED TO 1 MG FOUR TIMES DAILY, TRANSPLACENTAL
     Route: 064
     Dates: start: 20040101
  8. GABITRIL [Suspect]
     Dosage: 12 MG 1X PER 1 DAY, TRANSPLACENTAL
     Route: 064
     Dates: end: 20031229
  9. KLONOPIN [Suspect]
     Dosage: 2 MG 1X PER 1 DAY, TRANSPLACENTAL
     Route: 064
     Dates: end: 20031229
  10. REMERON [Suspect]
     Dosage: 45 MG 1X PER 1 DAY, TRANSPLACENTAL
     Route: 064
     Dates: end: 20040222
  11. REMERON [Suspect]
     Dosage: 60 MG 1X PER 1 DAY, TRANSPLACENTAL
     Route: 064
     Dates: start: 20040223

REACTIONS (7)
  - CAESAREAN SECTION [None]
  - CONGENITAL BLADDER ANOMALY [None]
  - DRUG EXPOSURE DURING PREGNANCY [None]
  - ELECTROCONVULSIVE THERAPY [None]
  - MENINGOMYELOCELE [None]
  - MULTIPLE CONGENITAL ABNORMALITIES [None]
  - PREMATURE BABY [None]
